FAERS Safety Report 16664188 (Version 1)
Quarter: 2019Q3

REPORT INFORMATION
  Report Type: Spontaneous
  Country: GB (occurrence: GB)
  Receive Date: 20190802
  Receipt Date: 20190802
  Transmission Date: 20191004
  Serious: Yes (Disabling)
  Sender: FDA-Public Use
  Company Number: GB-MYLANLABS-2019M1072561

PATIENT
  Age: 67 Year
  Sex: Male
  Weight: 107 kg

DRUGS (7)
  1. CETIRIZINE [Suspect]
     Active Substance: CETIRIZINE HYDROCHLORIDE
     Indication: PRODUCT USED FOR UNKNOWN INDICATION
     Dosage: 10 MILLIGRAM, QD
     Dates: start: 20181204
  2. DERMOL                             /01330701/ [Concomitant]
     Dosage: USE TO WASH
     Dates: start: 20180605
  3. LAXIDO [Concomitant]
     Active Substance: POLYETHYLENE GLYCOL 3350\POTASSIUM CHLORIDE\SODIUM BICARBONATE\SODIUM CHLORIDE
     Indication: CONSTIPATION
     Dosage: ONE TO TWO SACHETS DAILY
     Dates: start: 20170622
  4. PARACETAMOL [Concomitant]
     Active Substance: ACETAMINOPHEN
     Dosage: 8 DOSAGE FORM, QD
     Dates: start: 20170622
  5. ISPAGHULA EXTRACT\PSYLLIUM [Concomitant]
     Active Substance: HERBALS\PLANTAGO OVATA SEED\PLANTAGO SEED
     Dosage: 1 DOSAGE FORM, QD
     Dates: start: 20170622
  6. SUMATRIPTAN. [Concomitant]
     Active Substance: SUMATRIPTAN
     Dosage: AS DIRECTED
     Dates: start: 20170622
  7. PANTOPRAZOLE [Concomitant]
     Active Substance: PANTOPRAZOLE
     Dosage: 1 DOSAGE FORM, QD
     Dates: start: 20180605

REACTIONS (2)
  - Malaise [Recovered/Resolved]
  - Dizziness [Unknown]

NARRATIVE: CASE EVENT DATE: 20190213
